FAERS Safety Report 4634399-8 (Version None)
Quarter: 2005Q2

REPORT INFORMATION
  Report Type: 
  Country: None (occurrence: None)
  Receive Date: 20050411
  Receipt Date: 20050325
  Transmission Date: 20051028
  Serious: Yes (Death, Life-Threatening)
  Sender: FDA-Public Use
  Company Number: 2005AP01826

PATIENT
  Age: 85 Year
  Sex: Female
  Weight: 40 kg

DRUGS (4)
  1. MARCAINE [Suspect]
     Indication: SPINAL ANAESTHESIA
     Dosage: 11.5 MG IT
     Route: 037
     Dates: start: 20050322, end: 20050322
  2. MIDAZOLAM HCL [Concomitant]
     Route: 037
  3. PANSPORIN [Concomitant]
  4. SEISHOKU [Concomitant]

REACTIONS (8)
  - ANAESTHETIC COMPLICATION [None]
  - CARDIAC ARREST [None]
  - CARDIAC FAILURE [None]
  - ELECTROCARDIOGRAM ST SEGMENT ELEVATION [None]
  - HEPATIC CONGESTION [None]
  - PULMONARY EMBOLISM [None]
  - SHOCK [None]
  - THERAPY NON-RESPONDER [None]
